FAERS Safety Report 8780308 (Version 1)
Quarter: 2012Q4

REPORT INFORMATION
  Report Type: Spontaneous
  Country: US (occurrence: None)
  Receive Date: 20120905
  Receipt Date: 20120905
  Transmission Date: 20130627
  Serious: Yes (Life-Threatening, Hospitalization)
  Sender: FDA-Public Use
  Company Number: None

PATIENT
  Age: 79 Year
  Sex: Female
  Weight: 74 kg

DRUGS (6)
  1. VISIPAQUE [Suspect]
     Indication: CARDIAC CATH
     Dosage: X1
     Dates: start: 20120201
  2. ASPIRIN [Concomitant]
  3. PLAVIX [Concomitant]
  4. VASOTEC [Concomitant]
  5. LIPITOR [Concomitant]
  6. NOVOLIN 70/30 [Concomitant]

REACTIONS (4)
  - Contrast media reaction [None]
  - Respiratory distress [None]
  - Anaphylactic reaction [None]
  - Tachycardia [None]
